FAERS Safety Report 10050449 (Version 1)
Quarter: 2014Q1

REPORT INFORMATION
  Report Type: Spontaneous
  Country: US (occurrence: None)
  Receive Date: 20140328
  Receipt Date: 20140328
  Transmission Date: 20141002
  Serious: Yes (Death)
  Sender: FDA-Public Use
  Company Number: AUR-APL-2014-03759

PATIENT
  Age: 54 Year
  Sex: Female

DRUGS (5)
  1. LAMOTRIGINE (LAMOTRIGINE) [Suspect]
     Indication: PRODUCT USED FOR UNKNOWN INDICATION
  2. TRIMIPRAMINE [Suspect]
     Indication: PRODUCT USED FOR UNKNOWN INDICATION
     Route: 048
  3. METOPROLOL (METOPROLOL) [Suspect]
     Indication: PRODUCT USED FOR UNKNOWN INDICATION
  4. TRAZODONE (TRAZODONE) [Suspect]
     Indication: PRODUCT USED FOR UNKNOWN INDICATION
  5. LORAZEPAM (LORAZEPAM) [Suspect]
     Indication: PRODUCT USED FOR UNKNOWN INDICATION

REACTIONS (4)
  - Completed suicide [None]
  - Cardiac arrest [None]
  - Respiratory arrest [None]
  - Toxicity to various agents [None]
